FAERS Safety Report 10046092 (Version 1)
Quarter: 2014Q1

REPORT INFORMATION
  Report Type: Spontaneous
  Country: DE (occurrence: DE)
  Receive Date: 20140331
  Receipt Date: 20140331
  Transmission Date: 20141002
  Serious: Yes (Hospitalization)
  Sender: FDA-Public Use
  Company Number: DE-BIOGENIDEC-2014BI027314

PATIENT
  Age: 68 Year
  Sex: Female
  Weight: 85 kg

DRUGS (6)
  1. AVONEX [Suspect]
     Indication: MULTIPLE SCLEROSIS
     Route: 030
     Dates: start: 20120201
  2. VERAPAMIL [Concomitant]
     Indication: ARRHYTHMIA
  3. TILIDIN [Concomitant]
     Indication: PAIN
  4. ACETYLSALICYLIC ACID [Concomitant]
     Indication: COAGULATION TIME PROLONGED
  5. OMEPRAZOLE [Concomitant]
     Indication: PROPHYLAXIS
  6. GALACORDIN FORTE [Concomitant]
     Indication: NUTRITIONAL SUPPLEMENTATION

REACTIONS (2)
  - Gastrointestinal inflammation [Unknown]
  - Urinary tract infection [Unknown]
